FAERS Safety Report 9769796 (Version 3)
Quarter: 2013Q4

REPORT INFORMATION
  Report Type: Spontaneous
  Country: JP (occurrence: JP)
  Receive Date: 20131218
  Receipt Date: 20131227
  Transmission Date: 20140711
  Serious: Yes (Hospitalization)
  Sender: FDA-Public Use
  Company Number: JP-B.I. PHARMACEUTICALS,INC./RIDGEFIELD-2013-BI-42111GD

PATIENT
  Age: 69 Year
  Sex: Male

DRUGS (3)
  1. TELMISARTAN [Suspect]
     Indication: HYPERTENSION
     Dosage: 20 MG
     Route: 065
  2. AMLODIPINE BESILATE [Suspect]
     Indication: HYPERTENSION
     Dosage: 2.5 MG
     Route: 065
  3. LEVODOPA/CARBIDOPA [Suspect]
     Dosage: 400 MG
     Route: 065

REACTIONS (1)
  - Blood pressure fluctuation [Not Recovered/Not Resolved]
